FAERS Safety Report 11557647 (Version 2)
Quarter: 2015Q4

REPORT INFORMATION
  Report Type: Spontaneous
  Country: US (occurrence: US)
  Receive Date: 20150927
  Receipt Date: 20151214
  Transmission Date: 20160304
  Serious: No
  Sender: FDA-Public Use
  Company Number: US-ASTRAZENECA-2015SE88937

PATIENT
  Age: 28316 Day
  Sex: Female
  Weight: 79.8 kg

DRUGS (1)
  1. SYMBICORT [Suspect]
     Active Substance: BUDESONIDE\FORMOTEROL FUMARATE DIHYDRATE
     Indication: CHRONIC OBSTRUCTIVE PULMONARY DISEASE
     Dosage: 160/4.5 MCG, ONE PUFF TWICE A DAY
     Route: 055
     Dates: start: 20150909, end: 20150914

REACTIONS (6)
  - Off label use [Unknown]
  - Hypokinesia [Unknown]
  - Hypoacusis [Unknown]
  - Gait disturbance [Unknown]
  - Hypoaesthesia [Recovered/Resolved]
  - Cough [Recovered/Resolved]

NARRATIVE: CASE EVENT DATE: 20150914
